FAERS Safety Report 8310505-9 (Version None)
Quarter: 2012Q2

REPORT INFORMATION
  Report Type: 
  Country: None (occurrence: None)
  Receive Date: 20120425
  Receipt Date: 20120420
  Transmission Date: 20120825
  Serious: Yes (Hospitalization)
  Sender: FDA-Public Use
  Company Number: US-BAYER-2012-039927

PATIENT
  Age: 14 Year
  Sex: Male

DRUGS (1)
  1. MAGNEVIST [Suspect]
     Indication: IMAGING PROCEDURE
     Dosage: 8.5 ML, ONCE
     Route: 042
     Dates: start: 20120416

REACTIONS (2)
  - BLOOD CREATINE INCREASED [None]
  - BLOOD UREA INCREASED [None]
